FAERS Safety Report 23798554 (Version 1)
Quarter: 2024Q2

REPORT INFORMATION
  Report Type: Spontaneous
  Country: US (occurrence: None)
  Receive Date: 20240426
  Receipt Date: 20240426
  Transmission Date: 20240716
  Serious: No
  Sender: FDA-Public Use
  Company Number: None

PATIENT
  Age: 59 Year
  Sex: Female
  Weight: 70.65 kg

DRUGS (2)
  1. VICTOZA [Suspect]
     Active Substance: LIRAGLUTIDE
     Indication: Glucose tolerance impaired
     Dosage: 3 MG DAILY SUBCUTANEOUS
     Route: 058
     Dates: start: 20240206
  2. VICTOZA [Suspect]
     Active Substance: LIRAGLUTIDE
     Indication: Metabolic disorder

REACTIONS (3)
  - Injection site pain [None]
  - Pain [None]
  - Pain [None]

NARRATIVE: CASE EVENT DATE: 20240401
